FAERS Safety Report 7321090-2 (Version None)
Quarter: 2011Q1

REPORT INFORMATION
  Report Type: 
  Country: None (occurrence: None)
  Receive Date: 20110228
  Receipt Date: 20110217
  Transmission Date: 20110831
  Serious: Yes (Other)
  Sender: FDA-Public Use
  Company Number: US-JNJFOC-20100100843

PATIENT
  Sex: Female
  Weight: 56.7 kg

DRUGS (4)
  1. PREDNISONE [Concomitant]
     Indication: CROHN'S DISEASE
  2. ANTIBIOTICS [Concomitant]
     Indication: CROHN'S DISEASE
  3. REMICADE [Suspect]
     Route: 042
  4. REMICADE [Suspect]
     Indication: CROHN'S DISEASE
     Route: 042

REACTIONS (3)
  - PREMATURE LABOUR [None]
  - DRUG EXPOSURE BEFORE PREGNANCY [None]
  - CROHN'S DISEASE [None]
